FAERS Safety Report 16470348 (Version 3)
Quarter: 2019Q3

REPORT INFORMATION
  Report Type: Spontaneous
  Country: US (occurrence: US)
  Receive Date: 20190624
  Receipt Date: 20190816
  Transmission Date: 20191004
  Serious: Yes (Other)
  Sender: FDA-Public Use
  Company Number: US-PFIZER INC-2019269016

PATIENT
  Age: 53 Year
  Sex: Female

DRUGS (1)
  1. LYRICA [Suspect]
     Active Substance: PREGABALIN
     Indication: PAIN
     Dosage: 300 MG, THREE TIMES DAILY
     Route: 048

REACTIONS (4)
  - Amnesia [Unknown]
  - Prescribed overdose [Unknown]
  - Neuropathy peripheral [Unknown]
  - Fibromyalgia [Unknown]
